FAERS Safety Report 13588638 (Version 1)
Quarter: 2017Q2

REPORT INFORMATION
  Report Type: Spontaneous
  Country: FR (occurrence: FR)
  Receive Date: 20170529
  Receipt Date: 20170529
  Transmission Date: 20170830
  Serious: Yes (Hospitalization, Other)
  Sender: FDA-Public Use
  Company Number: FR-009507513-1705FRA014108

PATIENT
  Sex: Male

DRUGS (1)
  1. LIPTRUZET [Suspect]
     Active Substance: ATORVASTATIN CALCIUM\EZETIMIBE
     Dosage: UNK, (STRENGTH 10/10 (UNITS NOT PROVIDED))
     Route: 048

REACTIONS (3)
  - Hospitalisation [Unknown]
  - Drug intolerance [Unknown]
  - Abdominal pain [Unknown]
